FAERS Safety Report 9016733 (Version 3)
Quarter: 2014Q3

REPORT INFORMATION
  Report Type: Spontaneous
  Country: US (occurrence: US)
  Receive Date: 20130116
  Receipt Date: 20140814
  Transmission Date: 20150326
  Serious: Yes (Hospitalization, Disabling, Other)
  Sender: FDA-Public Use
  Company Number: US-009507513-1301USA005220

PATIENT
  Sex: Female
  Weight: 94.79 kg

DRUGS (1)
  1. NUVARING [Suspect]
     Active Substance: ETHINYL ESTRADIOL\ETONOGESTREL
     Dosage: UNK
     Route: 067
     Dates: start: 20020814, end: 20030712

REACTIONS (8)
  - Deep vein thrombosis [Unknown]
  - Dizziness [Unknown]
  - Tricuspid valve incompetence [Unknown]
  - Physical thyroid examination abnormal [Unknown]
  - Palpitations [Unknown]
  - Pulmonary embolism [Unknown]
  - Coagulopathy [Unknown]
  - Hyperhidrosis [Unknown]

NARRATIVE: CASE EVENT DATE: 200304
